FAERS Safety Report 19018181 (Version 1)
Quarter: 2021Q1

REPORT INFORMATION
  Report Type: Spontaneous
  Country: US (occurrence: US)
  Receive Date: 20210316
  Receipt Date: 20210316
  Transmission Date: 20210420
  Serious: Yes (Other)
  Sender: FDA-Public Use
  Company Number: None

PATIENT
  Age: 12 Year
  Sex: Male
  Weight: 31.75 kg

DRUGS (3)
  1. GENERIC GUANFACINE ER 4MG [Suspect]
     Active Substance: GUANFACINE
     Indication: ANXIETY DISORDER
     Dosage: ?          OTHER DOSE:ONE;OTHER FREQUENCY:OF AM;?
     Route: 048
     Dates: start: 2017
  2. NAME BRAND=GREACTION [Concomitant]
  3. GENERIC GUANFACINE ER 4MG [Suspect]
     Active Substance: GUANFACINE
     Indication: ATTENTION DEFICIT HYPERACTIVITY DISORDER
     Dosage: ?          OTHER DOSE:ONE;OTHER FREQUENCY:OF AM;?
     Route: 048
     Dates: start: 2017

REACTIONS (6)
  - Insurance issue [None]
  - Product substitution issue [None]
  - Anger [None]
  - Drug ineffective [None]
  - Anxiety [None]
  - Abnormal behaviour [None]
